FAERS Safety Report 5738989-0 (Version None)
Quarter: 2008Q2

REPORT INFORMATION
  Report Type: 
  Country: None (occurrence: None)
  Receive Date: 20080515
  Receipt Date: 20080505
  Transmission Date: 20081010
  Serious: Yes (Hospitalization)
  Sender: FDA-Public Use
  Company Number: ES-ROCHE-345184

PATIENT
  Sex: Male
  Weight: 65 kg

DRUGS (12)
  1. DACLIZUMAB [Suspect]
     Route: 042
     Dates: start: 20030708, end: 20030708
  2. DACLIZUMAB [Suspect]
     Route: 042
     Dates: end: 20030909
  3. MYCOPHENOLATE MOFETIL [Suspect]
     Route: 048
     Dates: start: 20030708
  4. CYCLOSPORINE [Suspect]
     Route: 048
  5. CYCLOSPORINE [Suspect]
     Route: 048
     Dates: start: 20030910
  6. CYCLOSPORINE [Suspect]
     Route: 048
     Dates: start: 20031008
  7. CYCLOSPORINE [Suspect]
     Route: 048
     Dates: start: 20030708
  8. PREDNISONE TAB [Suspect]
     Route: 048
     Dates: start: 20030801
  9. PREDNISONE TAB [Suspect]
     Route: 048
     Dates: start: 20030826
  10. RANITIDINE [Concomitant]
     Route: 048
     Dates: start: 20030716
  11. ZOCOR [Concomitant]
     Dates: start: 20030904
  12. OMEPRAZOLE [Concomitant]
     Dates: start: 20031003

REACTIONS (2)
  - CONGENITAL CYSTIC KIDNEY DISEASE [None]
  - CYTOMEGALOVIRUS INFECTION [None]
